FAERS Safety Report 8873888 (Version 2)
Quarter: 2012Q4

REPORT INFORMATION
  Report Type: 
  Country: DE (occurrence: DE)
  Receive Date: 20121030
  Receipt Date: 20121212
  Transmission Date: 20130627
  Serious: Yes (Hospitalization, Other)
  Sender: FDA-Public Use
  Company Number: PHHY2012DE095939

PATIENT
  Sex: Female

DRUGS (14)
  1. CLOZAPINE [Suspect]
     Dates: start: 2006
  2. CLOZAPINE [Suspect]
     Dosage: 25 mg, 3 x 25 mg daily
  3. CLOZAPINE [Suspect]
     Dosage: 12.5 mg, at night
     Dates: start: 2012
  4. LEPONEX [Suspect]
     Dosage: 25 mg, 1 x 12.5 mg for night
     Route: 048
     Dates: start: 2008
  5. CITALOPRAM [Suspect]
     Indication: DEPRESSED MOOD
     Dosage: UNK
     Dates: start: 2006
  6. CITALOPRAM [Suspect]
     Dosage: 30 mg, 2 x 30 mg
     Dates: end: 2008
  7. LEVODOPA [Concomitant]
     Dosage: UNK
  8. LEVODOPA/CARBIDOPA [Concomitant]
     Dosage: UNK, 1-1-1/2
  9. LEVODOPA-CARBIDOPA RETARD [Concomitant]
     Dosage: UNK
  10. LISURIDE [Concomitant]
     Dosage: 0.2 mg, 4 x 1 dose
  11. LISURIDE [Concomitant]
     Dosage: 0.2 mg, 4 x 0.2 mg
  12. LISURIDE [Concomitant]
     Dosage: UNK
  13. EXELON [Concomitant]
     Dosage: UNK
  14. EXELON [Concomitant]
     Dosage: UNK

REACTIONS (12)
  - Psychotic disorder [Recovering/Resolving]
  - Hepatic enzyme increased [Recovered/Resolved]
  - Aspartate aminotransferase increased [Recovered/Resolved]
  - Alanine aminotransferase increased [Recovered/Resolved]
  - Gamma-glutamyltransferase increased [Recovered/Resolved]
  - Vascular encephalopathy [Unknown]
  - Depressed mood [Unknown]
  - Memory impairment [Unknown]
  - Disorientation [Unknown]
  - Constipation [Unknown]
  - Urge incontinence [Unknown]
  - Blood pressure orthostatic abnormal [Unknown]
